FAERS Safety Report 22688280 (Version 2)
Quarter: 2024Q4

REPORT INFORMATION
  Report Type: Spontaneous
  Country: US (occurrence: US)
  Receive Date: 20230710
  Receipt Date: 20241203
  Transmission Date: 20250115
  Serious: Yes (Death)
  Sender: PFIZER
  Company Number: US-PFIZER INC-PV202300087857

PATIENT
  Age: 78 Year
  Sex: Male

DRUGS (2)
  1. CIBINQO [Suspect]
     Active Substance: ABROCITINIB
     Indication: Dermatitis atopic
     Dosage: 100 MG
     Route: 048
  2. CIBINQO [Suspect]
     Active Substance: ABROCITINIB
     Dosage: 200 MG

REACTIONS (2)
  - Death [Fatal]
  - Therapeutic product effect incomplete [Unknown]
